FAERS Safety Report 16597165 (Version 2)
Quarter: 2019Q3

REPORT INFORMATION
  Report Type: Report from Study
  Country: NL (occurrence: NL)
  Receive Date: 20190719
  Receipt Date: 20190729
  Transmission Date: 20191004
  Serious: Yes (Hospitalization, Other)
  Sender: FDA-Public Use
  Company Number: NL-GILEAD-2019-0418960

PATIENT
  Sex: Male

DRUGS (1)
  1. AZTREONAM LYSINE [Suspect]
     Active Substance: AZTREONAM LYSINE
     Indication: BRONCHIECTASIS
     Dosage: UNK, TID
     Route: 055
     Dates: start: 20190314

REACTIONS (4)
  - Pseudomonas infection [Unknown]
  - Adverse drug reaction [Unknown]
  - Off label use [Recovered/Resolved]
  - Pneumonia [Unknown]
